FAERS Safety Report 13704942 (Version 11)
Quarter: 2019Q1

REPORT INFORMATION
  Report Type: Report from Study
  Country: DE (occurrence: DE)
  Receive Date: 20170630
  Receipt Date: 20190227
  Transmission Date: 20190417
  Serious: Yes (Hospitalization)
  Sender: FDA-Public Use
  Company Number: DE-ROCHE-1955622

PATIENT
  Age: 53 Year
  Sex: Male
  Weight: 78 kg

DRUGS (7)
  1. BLINDED ATEZOLIZUMAB [Suspect]
     Active Substance: ATEZOLIZUMAB
     Indication: MALIGNANT MELANOMA
     Dosage: DATE OF MOST RECENT DOSE OF BLINDED ATEZOLIZUMAB PRIOR TO THE ONSET OF INFECTION: 09/AUG/2017?DATE O
     Route: 042
     Dates: start: 20170712
  2. VEMURAFENIB. [Suspect]
     Active Substance: VEMURAFENIB
     Indication: MALIGNANT MELANOMA
     Dosage: DATE OF MOST RECENT DOSE OF DOSE BLINDED VEMURAFENIB PRIOR TO THE ONSET OF INFECTION: 23/JUN/2017 (4
     Route: 048
     Dates: start: 20170607
  3. PARACETAMOL [Concomitant]
     Active Substance: ACETAMINOPHEN
     Indication: PYREXIA
     Route: 048
     Dates: start: 20170923
  4. PARACETAMOL [Concomitant]
     Active Substance: ACETAMINOPHEN
     Indication: INFECTION
     Route: 048
     Dates: start: 20170623, end: 20170630
  5. PANTOPRAZOL [Concomitant]
     Active Substance: PANTOPRAZOLE SODIUM
     Route: 048
     Dates: start: 20170929
  6. COBIMETINIB. [Suspect]
     Active Substance: COBIMETINIB
     Indication: MALIGNANT MELANOMA
     Dosage: DATE OF MOST RECENT DOSE OF DOSE COBIMETINIB PRIOR TO THE ONSET OF INFECTION: 23/JUN/2017 (3 MG)?DAT
     Route: 048
     Dates: start: 20170607
  7. ADVANTAN [Concomitant]
     Active Substance: METHYLPREDNISOLONE ACEPONATE
     Indication: RASH MACULO-PAPULAR
     Dosage: DOSE: 1 UNIT
     Route: 061
     Dates: start: 20170618

REACTIONS (4)
  - Blood creatine phosphokinase increased [Recovered/Resolved]
  - Infection [Recovered/Resolved]
  - Body temperature increased [Recovered/Resolved]
  - Hyperthyroidism [Recovering/Resolving]

NARRATIVE: CASE EVENT DATE: 20170623
